FAERS Safety Report 8187674-7 (Version None)
Quarter: 2012Q1

REPORT INFORMATION
  Report Type: 
  Country: None (occurrence: None)
  Receive Date: 20120306
  Receipt Date: 20120228
  Transmission Date: 20120608
  Serious: Yes (Hospitalization, Other)
  Sender: FDA-Public Use
  Company Number: ES-PFIZER INC-2012011468

PATIENT
  Age: 57 Year
  Sex: Female

DRUGS (2)
  1. LYRICA [Concomitant]
     Dosage: UNK
     Dates: start: 20110501, end: 20111201
  2. TOVIAZ [Suspect]
     Dosage: 4 MG, UNK
     Dates: start: 20111021, end: 20111220

REACTIONS (7)
  - OCULAR MYASTHENIA [None]
  - DIPLOPIA [None]
  - VISION BLURRED [None]
  - EYELID PTOSIS [None]
  - DRY EYE [None]
  - AGEUSIA [None]
  - ANOSMIA [None]
